FAERS Safety Report 7293529-2 (Version None)
Quarter: 2011Q1

REPORT INFORMATION
  Report Type: 
  Country: None (occurrence: None)
  Receive Date: 20110215
  Receipt Date: 20110204
  Transmission Date: 20110831
  Serious: Yes (Other)
  Sender: FDA-Public Use
  Company Number: CA-ELI_LILLY_AND_COMPANY-CA201102001237

PATIENT
  Sex: Male

DRUGS (7)
  1. ZYPREXA [Suspect]
     Indication: PSYCHOTIC DISORDER
     Dosage: 10 MG, DAILY (1/D)
     Route: 048
  2. PARIET [Concomitant]
     Dosage: 20 MG, DAILY (1/D)
     Route: 048
  3. DIVALPROEX [Concomitant]
     Dosage: 250 MG, EACH EVENING
     Route: 048
  4. ZYPREXA [Suspect]
     Dosage: 10 MG, DAILY (1/D)
  5. DIVALPROEX [Concomitant]
     Dosage: 500 MG, EACH MORNING
     Route: 048
  6. ZYPREXA [Suspect]
     Dosage: 5 MG, DAILY (1/D)
     Route: 048
  7. ZYPREXA [Suspect]
     Dosage: 2.5 MG, DAILY (1/D)
     Route: 048

REACTIONS (5)
  - EOSINOPHIL COUNT INCREASED [None]
  - TYPE 1 DIABETES MELLITUS [None]
  - ASPARTATE AMINOTRANSFERASE INCREASED [None]
  - WEIGHT INCREASED [None]
  - BLOOD GLUCOSE INCREASED [None]
